FAERS Safety Report 10885511 (Version 9)
Quarter: 2016Q1

REPORT INFORMATION
  Report Type: Report from Study
  Country: CA (occurrence: CA)
  Receive Date: 20150304
  Receipt Date: 20160113
  Transmission Date: 20160525
  Serious: Yes (Death, Hospitalization, Other)
  Sender: FDA-Public Use
  Company Number: PHHY2014CA156428

PATIENT
  Age: 78 Year
  Sex: Male

DRUGS (2)
  1. SANDOSTATIN LAR DEPOT [Suspect]
     Active Substance: OCTREOTIDE ACETATE
     Indication: CARCINOID TUMOUR OF THE SMALL BOWEL
     Dosage: 20 MG, QMO (ONCE A MONTH)
     Route: 030
     Dates: start: 200906, end: 20151224
  2. ENALAPRIL MALEATE. [Concomitant]
     Active Substance: ENALAPRIL MALEATE
     Indication: HYPERTENSION
     Dosage: 20 MG, BID
     Route: 065

REACTIONS (18)
  - Fall [Unknown]
  - Skin abrasion [Unknown]
  - Pain in extremity [Unknown]
  - Death [Fatal]
  - Nerve compression [Unknown]
  - Arthritis [Unknown]
  - Blood pressure increased [Unknown]
  - Stress [Unknown]
  - Parkinson^s disease [Not Recovered/Not Resolved]
  - Limb discomfort [Unknown]
  - Gait disturbance [Not Recovered/Not Resolved]
  - Diarrhoea [Recovered/Resolved]
  - Muscular weakness [Not Recovered/Not Resolved]
  - Weight decreased [Unknown]
  - Anxiety [Unknown]
  - Haematoma [Unknown]
  - Mobility decreased [Unknown]
  - General physical health deterioration [Unknown]

NARRATIVE: CASE EVENT DATE: 20141126
